FAERS Safety Report 4567903-9 (Version None)
Quarter: 2005Q1

REPORT INFORMATION
  Report Type: 
  Country: None (occurrence: None)
  Receive Date: 20050202
  Receipt Date: 20040929
  Transmission Date: 20050727
  Serious: Yes (Disabling)
  Sender: FDA-Public Use
  Company Number: 200413058JP

PATIENT
  Age: 60 Year
  Sex: Male
  Weight: 62 kg

DRUGS (7)
  1. ARAVA [Suspect]
     Route: 048
     Dates: start: 20040318
  2. NEUROTROPIN [Concomitant]
     Route: 048
  3. NAPROXEN [Concomitant]
     Route: 048
  4. PREDONINE [Concomitant]
     Route: 048
  5. MAGNESIUM OXIDE [Concomitant]
     Indication: CONSTIPATION
     Route: 048
  6. HUMACART-N [Concomitant]
     Indication: DIABETES MELLITUS NON-INSULIN-DEPENDENT
     Route: 051
     Dates: start: 20040919, end: 20040918
  7. HUMACART-N [Concomitant]
     Route: 051
     Dates: start: 20040519, end: 20040918

REACTIONS (18)
  - ABASIA [None]
  - ANAESTHESIA [None]
  - ASTHENIA [None]
  - BLOOD ALKALINE PHOSPHATASE INCREASED [None]
  - BLOOD GLUCOSE INCREASED [None]
  - BLOOD LACTATE DEHYDROGENASE INCREASED [None]
  - DYSPNOEA [None]
  - DYSSTASIA [None]
  - GLYCOSYLATED HAEMOGLOBIN INCREASED [None]
  - GUILLAIN-BARRE SYNDROME [None]
  - HAEMOGLOBIN DECREASED [None]
  - HYPOAESTHESIA [None]
  - MONOCYTE PERCENTAGE DECREASED [None]
  - MUSCULAR WEAKNESS [None]
  - PARAESTHESIA [None]
  - PLATELET COUNT INCREASED [None]
  - RED BLOOD CELL COUNT DECREASED [None]
  - WHITE BLOOD CELL COUNT INCREASED [None]
